FAERS Safety Report 7368559-2 (Version None)
Quarter: 2011Q1

REPORT INFORMATION
  Report Type: 
  Country: None (occurrence: None)
  Receive Date: 20110304
  Receipt Date: 20110218
  Transmission Date: 20110831
  Serious: Yes (Other)
  Sender: FDA-Public Use
  Company Number: 2011SP008251

PATIENT
  Sex: Male

DRUGS (2)
  1. DEXAMETHASONE [Concomitant]
  2. TEMODAL [Suspect]
     Indication: MIXED OLIGO-ASTROCYTOMA

REACTIONS (1)
  - PNEUMOCYSTIS JIROVECI INFECTION [None]
